FAERS Safety Report 21555261 (Version 1)
Quarter: 2022Q4

REPORT INFORMATION
  Report Type: Spontaneous
  Country: US (occurrence: None)
  Receive Date: 20221103
  Receipt Date: 20221103
  Transmission Date: 20230113
  Serious: Yes (Hospitalization, Other)
  Sender: FDA-Public Use
  Company Number: None

PATIENT
  Age: 45 Year
  Sex: Female

DRUGS (2)
  1. SERMORELIN ACETATE [Suspect]
     Active Substance: SERMORELIN ACETATE
     Indication: Blood growth hormone abnormal
     Dosage: FREQUENCY : DAILY;?
     Route: 058
  2. BACTERIOSTATIC WATER [Suspect]
     Active Substance: WATER

REACTIONS (2)
  - Diarrhoea [None]
  - Anaphylactic reaction [None]

NARRATIVE: CASE EVENT DATE: 20221101
